FAERS Safety Report 5363549-3 (Version None)
Quarter: 2007Q2

REPORT INFORMATION
  Report Type: 
  Country: None (occurrence: None)
  Receive Date: 20070620
  Receipt Date: 20070608
  Transmission Date: 20071010
  Serious: Yes (Other)
  Sender: FDA-Public Use
  Company Number: ES-AMGEN-UK229319

PATIENT
  Sex: Female

DRUGS (1)
  1. KINERET [Suspect]
     Indication: JUVENILE ARTHRITIS
     Dates: start: 20050401, end: 20050605

REACTIONS (3)
  - HAEMOTHORAX [None]
  - MULTI-ORGAN FAILURE [None]
  - SEPTIC SHOCK [None]
